FAERS Safety Report 6137764-5 (Version None)
Quarter: 2009Q1

REPORT INFORMATION
  Report Type: 
  Country: None (occurrence: None)
  Receive Date: 20090326
  Receipt Date: 20090311
  Transmission Date: 20090719
  Serious: Yes (Hospitalization)
  Sender: FDA-Public Use
  Company Number: 2008-01342

PATIENT
  Age: 63 Year
  Sex: Female
  Weight: 45 kg

DRUGS (16)
  1. VELCADE [Suspect]
     Indication: MULTIPLE MYELOMA
     Dosage: 1.8 MG, INTRAVENOUS
     Route: 042
     Dates: start: 20080226, end: 20080307
  2. DECADRON [Concomitant]
  3. AMINOPHYLLIN [Concomitant]
  4. PREDNILOLONE [Concomitant]
  5. ANTIBIOTICS [Concomitant]
  6. SULFAMETHOXAZOLE W/TRIMETHOPRIM (SULFAMETHOXAZOLE, TRIMETHOPRIM) [Concomitant]
  7. GANCICLOVIR [Concomitant]
  8. LOPEMIN (LOPERAMIDE HDROCHLORIDE) [Concomitant]
  9. THEO-DUR [Concomitant]
  10. SPIRODENT (CLENBUTEROL HYDROCHLORIDE) [Concomitant]
  11. ROCEPHIN [Concomitant]
  12. ITRACONAZOLE [Concomitant]
  13. VENOGLOBULIN-I [Concomitant]
  14. MINOCYCLINE HCL [Concomitant]
  15. MEROPEN (MEROPENEM) [Concomitant]
  16. SOLU-MEDROL [Concomitant]

REACTIONS (4)
  - DIALYSIS [None]
  - DIARRHOEA [None]
  - INTERSTITIAL LUNG DISEASE [None]
  - RENAL FAILURE ACUTE [None]
